FAERS Safety Report 13681146 (Version 6)
Quarter: 2017Q3

REPORT INFORMATION
  Report Type: Report from Study
  Country: None (occurrence: TR)
  Receive Date: 20170623
  Receipt Date: 20170930
  Transmission Date: 20171127
  Serious: Yes (Hospitalization, Other)
  Sender: FDA-Public Use
  Company Number: TR-ABBVIE-17K-161-2013116-00

PATIENT
  Age: 60 Year
  Sex: Male
  Weight: 53 kg

DRUGS (11)
  1. LANSOR [Concomitant]
     Active Substance: LANSOPRAZOLE
     Indication: GASTRIC DISORDER
     Route: 048
     Dates: start: 201611
  2. LARGACTIL [Concomitant]
     Active Substance: CHLORPROMAZINE
     Indication: ANTIEMETIC SUPPORTIVE CARE
     Dosage: 3X0.25
     Route: 048
     Dates: start: 201701
  3. PROMEGA [Concomitant]
     Indication: SUPPLEMENTATION THERAPY
     Route: 048
     Dates: start: 201701
  4. GYREX [Concomitant]
     Indication: SLEEP DISORDER
     Route: 048
     Dates: start: 201608
  5. LANSOR [Concomitant]
     Active Substance: LANSOPRAZOLE
     Indication: PROPHYLAXIS
  6. DUODOPA [Suspect]
     Active Substance: CARBIDOPA\LEVODOPA
     Indication: PARKINSON^S DISEASE
     Dosage: MORNING DOSE : 7,50 ML?CONTINOUS DOSE: 5,30 ML?EXTRA DOSE: 1,00 ML
     Route: 050
     Dates: start: 20161102, end: 20170919
  7. DUODOPA [Suspect]
     Active Substance: CARBIDOPA\LEVODOPA
     Route: 050
     Dates: start: 20170927
  8. OMEPROL [Concomitant]
     Active Substance: OMEPRAZOLE
     Indication: GASTRIC DISORDER
     Route: 048
     Dates: start: 201612
  9. UROREC [Concomitant]
     Active Substance: SILODOSIN
     Indication: PROSTATIC DISORDER
     Route: 048
     Dates: start: 2011
  10. OMEPROL [Concomitant]
     Active Substance: OMEPRAZOLE
     Indication: PROPHYLAXIS
  11. COENZ QH [Concomitant]
     Indication: VITAMIN SUPPLEMENTATION
     Route: 048
     Dates: start: 201701

REACTIONS (6)
  - Pneumonia [Recovered/Resolved]
  - Wheezing [Recovered/Resolved]
  - Weight fluctuation [Recovering/Resolving]
  - Vomiting [Recovered/Resolved]
  - Decubitus ulcer [Recovered/Resolved]
  - Pyrexia [Recovered/Resolved]

NARRATIVE: CASE EVENT DATE: 2017
